FAERS Safety Report 13657439 (Version 2)
Quarter: 2017Q3

REPORT INFORMATION
  Report Type: Report from Study
  Country: CA (occurrence: CA)
  Receive Date: 20170615
  Receipt Date: 20170914
  Transmission Date: 20171127
  Serious: Yes (Other)
  Sender: FDA-Public Use
  Company Number: CA-INCYTE CORPORATION-2017IN004587

PATIENT

DRUGS (1)
  1. JAKAVI [Suspect]
     Active Substance: RUXOLITINIB
     Indication: POLYCYTHAEMIA VERA
     Dosage: 10 MG, BID
     Route: 048
     Dates: start: 20160516

REACTIONS (8)
  - Haemorrhage [Recovering/Resolving]
  - Erythema [Recovering/Resolving]
  - Fatigue [Unknown]
  - Dysphonia [Unknown]
  - Dyspnoea [Unknown]
  - Impaired healing [Unknown]
  - Limb injury [Recovering/Resolving]
  - Skin warm [Recovering/Resolving]

NARRATIVE: CASE EVENT DATE: 20170601
